FAERS Safety Report 4307968-2 (Version None)
Quarter: 2004Q1

REPORT INFORMATION
  Report Type: 
  Country: None (occurrence: None)
  Receive Date: 20040301
  Receipt Date: 20030127
  Transmission Date: 20041129
  Serious: No
  Sender: FDA-Public Use
  Company Number: US-BRISTOL-MYERS SQUIBB COMPANY-12182762

PATIENT
  Age: 65 Year
  Sex: Female
  Weight: 66 kg

DRUGS (1)
  1. METFORMIN HCL [Suspect]

REACTIONS (3)
  - DYSPEPSIA [None]
  - FLATULENCE [None]
  - NAUSEA [None]
